FAERS Safety Report 9179488 (Version 1)
Quarter: 2012Q4

REPORT INFORMATION
  Report Type: 
  Country: US (occurrence: US)
  Receive Date: 20121029
  Receipt Date: 20121029
  Transmission Date: 20130627
  Serious: No
  Sender: FDA-Public Use
  Company Number: US-AMGEN-USASP2012055687

PATIENT
  Sex: Female

DRUGS (10)
  1. ENBREL [Suspect]
     Indication: PRODUCT USED FOR UNKNOWN INDICATION
     Dosage: 50 mg, qwk
     Route: 058
     Dates: end: 201204
  2. PROCARDIA                          /00340701/ [Concomitant]
     Dosage: 10 mg, UNK
  3. TRAMADOL HCL [Concomitant]
     Dosage: 50 mg, UNK
  4. LEFLUNOMIDE [Concomitant]
     Dosage: 10 mg, UNK
  5. LEVOTHYROXIN [Concomitant]
     Dosage: 25 mug, UNK
  6. CRESTOR [Concomitant]
     Dosage: 10 mg, UNK
  7. FISH OIL [Concomitant]
     Dosage: UNK
  8. CALCIUM [Concomitant]
     Dosage: 500 UNK, UNK
  9. MULTIVITAMIN                       /00097801/ [Concomitant]
  10. SALAGEN [Concomitant]
     Dosage: 5 mg, UNK

REACTIONS (2)
  - Psoriasis [Unknown]
  - Pain [Unknown]
